FAERS Safety Report 4604543-7 (Version None)
Quarter: 2005Q2

REPORT INFORMATION
  Report Type: 
  Country: None (occurrence: None)
  Receive Date: 20050217
  Receipt Date: 20050106
  Transmission Date: 20051028
  Serious: No
  Sender: FDA-Public Use
  Company Number: S05-USA-00040-01

PATIENT
  Age: 83 Year
  Sex: Male

DRUGS (10)
  1. NAMENDA [Suspect]
     Indication: DEMENTIA
     Dosage: 10 MG BID PO
     Route: 048
     Dates: start: 20041125, end: 20050104
  2. NAMENDA [Suspect]
     Indication: DEMENTIA
     Dosage: 5 MG QD PO
     Route: 048
     Dates: start: 20041104, end: 20041110
  3. NAMENDA [Suspect]
     Indication: DEMENTIA
     Dosage: 5 MG BID PO
     Route: 048
     Dates: start: 20041111, end: 20041117
  4. NAMENDA [Suspect]
     Indication: DEMENTIA
     Dosage: 15 MG QD PO
     Route: 048
     Dates: start: 20041118, end: 20041124
  5. TEMAZEPAM [Concomitant]
  6. MECLIZINE [Concomitant]
  7. NORVASC [Concomitant]
  8. ALBUTEROL [Concomitant]
  9. NASONEX [Concomitant]
  10. ASIRIN [Concomitant]

REACTIONS (1)
  - CONSTIPATION [None]
